FAERS Safety Report 19922427 (Version 1)
Quarter: 2021Q4

REPORT INFORMATION
  Report Type: Spontaneous
  Country: US (occurrence: US)
  Receive Date: 20211005
  Receipt Date: 20211005
  Transmission Date: 20220303
  Serious: Yes (Other)
  Sender: FDA-Public Use
  Company Number: None

PATIENT
  Age: 27 Year
  Sex: Female
  Weight: 76.5 kg

DRUGS (1)
  1. DEPO-PROVERA [Suspect]
     Active Substance: MEDROXYPROGESTERONE ACETATE
     Indication: Contraception
     Dosage: QUANTITY:1 INJECTION(S);OTHER FREQUENCY:EVERY 3 MONTHS;
     Route: 030

REACTIONS (5)
  - Tachycardia [None]
  - Supraventricular tachycardia [None]
  - Migraine [None]
  - Electrocardiogram abnormal [None]
  - Weight increased [None]

NARRATIVE: CASE EVENT DATE: 20181203
